FAERS Safety Report 11081056 (Version 1)
Quarter: 2015Q2

REPORT INFORMATION
  Report Type: Spontaneous
  Country: US (occurrence: None)
  Receive Date: 20150429
  Receipt Date: 20150429
  Transmission Date: 20150821
  Serious: Yes (Other)
  Sender: FDA-Public Use
  Company Number: US-001874

PATIENT
  Age: 57 Year
  Sex: Female

DRUGS (2)
  1. SOLUTIONS FOR PARENTERAL NUTRITION [Concomitant]
     Active Substance: AMINO ACIDS\DEXTROSE\ELECTROLYTES NOS
  2. GATTEX [Suspect]
     Active Substance: TEDUGLUTIDE\WATER
     Indication: SHORT-BOWEL SYNDROME
     Dosage: DF
     Route: 058

REACTIONS (8)
  - Pyelonephritis [None]
  - Heart rate increased [None]
  - Blood pressure increased [None]
  - Nausea [None]
  - Decreased appetite [None]
  - Weight increased [None]
  - Dyspnoea exertional [None]
  - Abdominal distension [None]

NARRATIVE: CASE EVENT DATE: 20150404
